FAERS Safety Report 20087652 (Version 1)
Quarter: 2021Q4

REPORT INFORMATION
  Report Type: Spontaneous
  Country: US (occurrence: US)
  Receive Date: 20211118
  Receipt Date: 20211118
  Transmission Date: 20220304
  Serious: No
  Sender: FDA-Public Use
  Company Number: US-SANOFI-00855857

PATIENT
  Sex: Female

DRUGS (1)
  1. ALLEGRA [Suspect]
     Active Substance: FEXOFENADINE HYDROCHLORIDE
     Indication: Allergy to animal
     Dosage: 1 DF, QD
     Route: 065

REACTIONS (3)
  - Product packaging difficult to open [Unknown]
  - Drug ineffective [Unknown]
  - Product size issue [Unknown]
